FAERS Safety Report 5008303-7 (Version None)
Quarter: 2006Q2

REPORT INFORMATION
  Report Type: 
  Country: None (occurrence: None)
  Receive Date: 20060523
  Receipt Date: 20060516
  Transmission Date: 20061013
  Serious: Yes (Other)
  Sender: FDA-Public Use
  Company Number: BE-JNJFOC-20060503561

PATIENT
  Age: 18 Year
  Sex: Male

DRUGS (2)
  1. SPORANOX [Suspect]
     Route: 048
  2. SPORANOX [Suspect]
     Dosage: TREATMENT FOR 1 WEEK WAS 1 DOSE OF 2 CAPSULES PER DAY, THEN 1 DAY PER MONTH.
     Route: 048

REACTIONS (1)
  - EPILEPSY [None]
